FAERS Safety Report 7887950-9 (Version None)
Quarter: 2011Q4

REPORT INFORMATION
  Report Type: 
  Country: None (occurrence: None)
  Receive Date: 20111103
  Receipt Date: 20111021
  Transmission Date: 20120403
  Serious: Yes (Other)
  Sender: FDA-Public Use
  Company Number: BR-RANBAXY-2011R5-49953

PATIENT

DRUGS (2)
  1. CEFUROXIME AXETIL [Suspect]
     Indication: LUNG DISORDER
  2. CEFUROXIME AXETIL [Suspect]
     Indication: EAR INFECTION
     Dosage: 3 ML BID
     Route: 048
     Dates: start: 20111019

REACTIONS (3)
  - DYSGEUSIA [None]
  - COUGH [None]
  - CHOKING [None]
